FAERS Safety Report 11458088 (Version 1)
Quarter: 2015Q3

REPORT INFORMATION
  Report Type: Spontaneous
  Country: US (occurrence: None)
  Receive Date: 20150903
  Receipt Date: 20150903
  Transmission Date: 20151125
  Serious: No
  Sender: FDA-Public Use
  Company Number: None

PATIENT
  Age: 45 Year
  Sex: Female
  Weight: 102.06 kg

DRUGS (4)
  1. NOVOCAINE [Suspect]
     Active Substance: PROCAINE
     Indication: PRODUCT USED FOR UNKNOWN INDICATION
  2. IRON PILLS [Concomitant]
     Active Substance: IRON
  3. VITAMIN D [Concomitant]
     Active Substance: CHOLECALCIFEROL
  4. STOOL SOFTNER [Concomitant]

REACTIONS (3)
  - Discomfort [None]
  - Headache [None]
  - Incorrect dose administered [None]

NARRATIVE: CASE EVENT DATE: 20150901
